FAERS Safety Report 9177884 (Version 1)
Quarter: 2013Q1

REPORT INFORMATION
  Report Type: Spontaneous
  Country: US (occurrence: US)
  Receive Date: 20130321
  Receipt Date: 20130321
  Transmission Date: 20140127
  Serious: No
  Sender: FDA-Public Use
  Company Number: US-ASTRAZENECA-2013SE16113

PATIENT
  Age: 70 Year
  Sex: Female
  Weight: 79.4 kg

DRUGS (6)
  1. FASLODEX [Suspect]
     Indication: BREAST CANCER METASTATIC
     Route: 030
     Dates: start: 20130220
  2. LISINOPRIL [Suspect]
     Indication: HEART RATE INCREASED
     Route: 048
  3. BUMEX [Concomitant]
     Indication: HEART RATE INCREASED
     Dosage: 1MG
  4. GLUCAPHAGE [Concomitant]
     Indication: BLOOD GLUCOSE ABNORMAL
     Dosage: 500MG
  5. GLUCOTROL [Concomitant]
     Indication: BLOOD GLUCOSE ABNORMAL
     Dosage: 10MG
  6. SYNTHROID [Concomitant]
     Indication: HYPOTHYROIDISM
     Dosage: 100MG

REACTIONS (1)
  - Expiratory reserve volume increased [Unknown]
